FAERS Safety Report 9211074 (Version 1)
Quarter: 2013Q2

REPORT INFORMATION
  Report Type: Spontaneous
  Country: US (occurrence: US)
  Receive Date: 20130404
  Receipt Date: 20130404
  Transmission Date: 20140414
  Serious: Yes (Other)
  Sender: FDA-Public Use
  Company Number: US-PFIZER INC-2013103204

PATIENT
  Age: 73 Year
  Sex: Female
  Weight: 77.1 kg

DRUGS (2)
  1. TOVIAZ [Suspect]
     Indication: HYPERTONIC BLADDER
     Dosage: 4 MG, 1X/DAY AT NIGHT
     Route: 048
     Dates: start: 20130328
  2. LOTREL [Concomitant]
     Indication: HYPERTENSION
     Dosage: DAILY

REACTIONS (6)
  - Urinary retention [Not Recovered/Not Resolved]
  - Bladder pain [Unknown]
  - Dysuria [Unknown]
  - Fatigue [Unknown]
  - Discomfort [Unknown]
  - Insomnia [Unknown]
